FAERS Safety Report 8104488-4 (Version None)
Quarter: 2012Q1

REPORT INFORMATION
  Report Type: 
  Country: None (occurrence: None)
  Receive Date: 20120130
  Receipt Date: 20120130
  Transmission Date: 20120608
  Serious: Yes (Death, Other)
  Sender: FDA-Public Use
  Company Number: BE-JNJFOC-20090600780

PATIENT
  Age: 17 Year
  Sex: Female

DRUGS (2)
  1. CYCLOSPORINE [Suspect]
     Indication: ILL-DEFINED DISORDER
  2. REMICADE [Suspect]
     Indication: GRANULOMA
     Dosage: 3 DOSES, ON DAY 0, 14 AND EVERY 6-8 WEEKS
     Route: 042

REACTIONS (2)
  - HYPERTENSIVE ENCEPHALOPATHY [None]
  - PROGRESSIVE MULTIFOCAL LEUKOENCEPHALOPATHY [None]
